FAERS Safety Report 8058568-2 (Version None)
Quarter: 2012Q1

REPORT INFORMATION
  Report Type: 
  Country: None (occurrence: None)
  Receive Date: 20120120
  Receipt Date: 20120117
  Transmission Date: 20120608
  Serious: Yes (Other)
  Sender: FDA-Public Use
  Company Number: US-PFIZER INC-2011306886

PATIENT
  Sex: Female

DRUGS (1)
  1. MEDROL [Suspect]
     Dosage: 2 MG, (TAKE 1 TABLET DAILY)
     Route: 048

REACTIONS (5)
  - MYOCARDIAL INFARCTION [None]
  - DYSGEUSIA [None]
  - HEARING IMPAIRED [None]
  - GLOSSODYNIA [None]
  - HEADACHE [None]
